FAERS Safety Report 9521696 (Version 1)
Quarter: 2013Q3

REPORT INFORMATION
  Report Type: Spontaneous
  Country: FR (occurrence: None)
  Receive Date: 20130911
  Receipt Date: 20130911
  Transmission Date: 20140515
  Serious: Yes (Hospitalization)
  Sender: FDA-Public Use
  Company Number: 2013000226

PATIENT
  Age: 92 Year
  Sex: Female

DRUGS (9)
  1. ACEON [Suspect]
     Indication: PRODUCT USED FOR UNKNOWN INDICATION
     Route: 048
     Dates: start: 20121129, end: 20121207
  2. FURADANTINE [Suspect]
     Indication: URINARY TRACT INFECTION
     Route: 048
     Dates: start: 20121129, end: 20121204
  3. CIFLOX [Suspect]
     Indication: URINARY TRACT INFECTION
     Route: 048
     Dates: start: 20121204, end: 20121207
  4. LASILIX (FUROSEMIDE) [Concomitant]
  5. PLAVIX (CLOPIDOGREL SULFATE) [Concomitant]
  6. INEXIUM (ESOMEPRAZOLE MAGNESIUM) [Concomitant]
  7. CALCIDIA (CALCIUM CARBONATE) [Concomitant]
  8. ATARAX (ALPRAZOLAM) [Concomitant]
  9. UVEDOSE (COLECALCIFEROL) [Concomitant]

REACTIONS (3)
  - Drug reaction with eosinophilia and systemic symptoms [None]
  - Acute pulmonary oedema [None]
  - Renal failure acute [None]
